FAERS Safety Report 17974172 (Version 1)
Quarter: 2020Q3

REPORT INFORMATION
  Report Type: Spontaneous
  Country: CN (occurrence: CN)
  Receive Date: 20200702
  Receipt Date: 20200702
  Transmission Date: 20201103
  Serious: Yes (Hospitalization, Other)
  Sender: FDA-Public Use
  Company Number: CN-PFIZER INC-2020249489

PATIENT
  Age: 57 Year
  Sex: Female

DRUGS (1)
  1. XALKORI [Suspect]
     Active Substance: CRIZOTINIB
     Dosage: 250 MG, 2X/DAY
     Route: 048
     Dates: start: 20190119, end: 202003

REACTIONS (12)
  - Renal abscess [Unknown]
  - Muscle enzyme increased [Unknown]
  - Sinus bradycardia [Unknown]
  - Oedema peripheral [Unknown]
  - Blood lactate dehydrogenase increased [Unknown]
  - Blood creatine phosphokinase increased [Unknown]
  - Cellulitis [Unknown]
  - Blood creatine phosphokinase MB increased [Unknown]
  - White blood cell count decreased [Unknown]
  - Pulmonary embolism [Unknown]
  - Mass [Unknown]
  - Inflammation [Unknown]

NARRATIVE: CASE EVENT DATE: 2019
